FAERS Safety Report 18271042 (Version 2)
Quarter: 2021Q2

REPORT INFORMATION
  Report Type: Spontaneous
  Country: US (occurrence: US)
  Receive Date: 20200916
  Receipt Date: 20210618
  Transmission Date: 20210717
  Serious: Yes (Disabling)
  Sender: FDA-Public Use
  Company Number: US-TEVA-2020-US-1828496

PATIENT
  Age: 65 Year
  Sex: Female
  Weight: 77.18 kg

DRUGS (9)
  1. DICYCLOMINE [Concomitant]
     Active Substance: DICYCLOMINE HYDROCHLORIDE
     Dates: start: 20140830, end: 20140930
  2. LOVASTATIN. [Concomitant]
     Active Substance: LOVASTATIN
     Dates: start: 20140715
  3. BUPROPION. [Concomitant]
     Active Substance: BUPROPION
     Dates: start: 20140317, end: 20150630
  4. CYCLOPHOSPHAMIDE. [Suspect]
     Active Substance: CYCLOPHOSPHAMIDE
     Indication: BREAST CANCER FEMALE
     Dosage: NUMBER OF CYCLE ? 4, FREQUENCY: EVERY 3 WEEKS
     Route: 042
     Dates: start: 20140901, end: 20141121
  5. TYLENOL [Concomitant]
     Active Substance: ACETAMINOPHEN
     Dates: start: 2012
  6. DOCETAXEL ACTAVIS [Suspect]
     Active Substance: DOCETAXEL
     Indication: BREAST CANCER FEMALE
     Dosage: NUMBER OF CYCLE ? 4, FREQUENCY: EVERY 3 WEEKS
     Route: 042
     Dates: start: 20140901, end: 20141121
  7. METFORMIN [Concomitant]
     Active Substance: METFORMIN HYDROCHLORIDE
     Dates: start: 20140612
  8. LOSARTAN. [Concomitant]
     Active Substance: LOSARTAN
     Dates: start: 20130917
  9. ASPIRIN. [Concomitant]
     Active Substance: ASPIRIN
     Dates: start: 201210

REACTIONS (13)
  - Alopecia areata [Not Recovered/Not Resolved]
  - Neck pain [Recovered/Resolved]
  - Burning sensation [Unknown]
  - Dyspepsia [Unknown]
  - Hair texture abnormal [Not Recovered/Not Resolved]
  - Pain in extremity [Unknown]
  - Madarosis [Not Recovered/Not Resolved]
  - Hair colour changes [Not Recovered/Not Resolved]
  - Pain [Unknown]
  - Flushing [Unknown]
  - Chest pain [Recovered/Resolved]
  - Back pain [Recovered/Resolved]
  - Chest discomfort [Recovered/Resolved]

NARRATIVE: CASE EVENT DATE: 201410
